FAERS Safety Report 4786650-1 (Version None)
Quarter: 2005Q3

REPORT INFORMATION
  Report Type: 
  Country: None (occurrence: None)
  Receive Date: 20050930
  Receipt Date: 20050916
  Transmission Date: 20060218
  Serious: No
  Sender: FDA-Public Use
  Company Number: US016042

PATIENT
  Age: 3 Year
  Sex: Male

DRUGS (1)
  1. ACTIQ [Suspect]
     Dosage: 600 UG ONCE BUCCAL
     Route: 002
     Dates: start: 20050916, end: 20050916

REACTIONS (1)
  - ACCIDENTAL DRUG INTAKE BY CHILD [None]
